FAERS Safety Report 6727282-5 (Version None)
Quarter: 2010Q2

REPORT INFORMATION
  Report Type: 
  Country: None (occurrence: None)
  Receive Date: 20100517
  Receipt Date: 20100507
  Transmission Date: 20101027
  Serious: Yes (Hospitalization)
  Sender: FDA-Public Use
  Company Number: US-JNJFOC-20100502742

PATIENT
  Sex: Female
  Weight: 99.79 kg

DRUGS (3)
  1. DURAGESIC-100 [Suspect]
     Indication: INTERVERTEBRAL DISC PROTRUSION
     Route: 062
  2. DURAGESIC-100 [Suspect]
     Dosage: NDC 50458-0093-05
     Route: 062
  3. MULTIPLE MEDICATIONS [Concomitant]
     Route: 065

REACTIONS (6)
  - DRUG EFFECT INCREASED [None]
  - DRUG INEFFECTIVE [None]
  - FALL [None]
  - GASTRIC BYPASS [None]
  - PRODUCT ADHESION ISSUE [None]
  - WRONG TECHNIQUE IN DRUG USAGE PROCESS [None]
